FAERS Safety Report 7967162-0 (Version None)
Quarter: 2011Q4

REPORT INFORMATION
  Report Type: 
  Country: None (occurrence: None)
  Receive Date: 20111208
  Receipt Date: 20111208
  Transmission Date: 20120403
  Serious: Yes (Other)
  Sender: FDA-Public Use
  Company Number: None

PATIENT
  Age: 45 Year
  Sex: Female
  Weight: 45.3597 kg

DRUGS (1)
  1. NICORETTE [Suspect]
     Dates: start: 20020101, end: 20111206

REACTIONS (3)
  - DRUG DEPENDENCE [None]
  - TOOTH DISORDER [None]
  - GINGIVAL DISORDER [None]
